FAERS Safety Report 5956781-9 (Version None)
Quarter: 2008Q4

REPORT INFORMATION
  Report Type: 
  Country: None (occurrence: None)
  Receive Date: 20081114
  Receipt Date: 20081114
  Transmission Date: 20090506
  Serious: No
  Sender: FDA-Public Use
  Company Number: None

PATIENT
  Age: 59 Year
  Sex: Female
  Weight: 50.8029 kg

DRUGS (1)
  1. LIPITOR [Suspect]
     Indication: ARTERIAL OCCLUSIVE DISEASE
     Dosage: 1 TABLET DAILY
     Dates: start: 20081005, end: 20081113

REACTIONS (2)
  - DEPRESSION [None]
  - FEELING OF DESPAIR [None]
